FAERS Safety Report 17239377 (Version 2)
Quarter: 2020Q1

REPORT INFORMATION
  Report Type: Spontaneous
  Country: RU (occurrence: RU)
  Receive Date: 20200106
  Receipt Date: 20200128
  Transmission Date: 20200409
  Serious: Yes (Other)
  Sender: FDA-Public Use
  Company Number: RU-JNJFOC-20191248208

PATIENT
  Sex: Female

DRUGS (4)
  1. YONDELIS [Suspect]
     Active Substance: TRABECTEDIN
     Indication: SEROUS CYSTADENOCARCINOMA OVARY
     Dosage: CYCLE 1 TO 3
     Route: 042
     Dates: start: 20130731, end: 2013
  2. CAELYX [Suspect]
     Active Substance: DOXORUBICIN HYDROCHLORIDE
     Indication: SEROUS CYSTADENOCARCINOMA OVARY
     Dosage: CYCLE 1 TO 3
     Route: 042
     Dates: start: 20130731, end: 2013
  3. CAELYX [Suspect]
     Active Substance: DOXORUBICIN HYDROCHLORIDE
     Dosage: CYCLE 4 TO 15
     Route: 042
     Dates: start: 2013, end: 20140702
  4. YONDELIS [Suspect]
     Active Substance: TRABECTEDIN
     Dosage: CYCLE 4 TO 15
     Route: 042
     Dates: start: 2013, end: 20140702

REACTIONS (6)
  - Respiratory tract infection viral [Unknown]
  - Hepatic enzyme increased [Recovered/Resolved]
  - Neutropenia [Recovered/Resolved]
  - Thrombocytopenia [Recovered/Resolved]
  - Anaemia [Recovered/Resolved]
  - Palmar-plantar erythrodysaesthesia syndrome [Unknown]

NARRATIVE: CASE EVENT DATE: 2013
